FAERS Safety Report 6678623-9 (Version None)
Quarter: 2010Q2

REPORT INFORMATION
  Report Type: 
  Country: None (occurrence: None)
  Receive Date: 20100412
  Receipt Date: 20100412
  Transmission Date: 20101027
  Serious: Yes (Life-Threatening)
  Sender: FDA-Public Use
  Company Number: None

PATIENT
  Age: 76 Year
  Sex: Female
  Weight: 59 kg

DRUGS (11)
  1. HYDROMORPHONE HCL [Suspect]
     Indication: PAIN
     Dosage: 0.3 MG IV Q2 PRN
     Route: 042
     Dates: start: 20091212, end: 20091213
  2. MORPHINE [Suspect]
     Indication: PAIN
     Dosage: 3 MG X 1 IV, 1 MG IV Q HR
     Route: 042
     Dates: start: 20091213
  3. LEVOTHYROXINE [Concomitant]
  4. PREDNISONE [Concomitant]
  5. DEMEROL [Concomitant]
  6. PSYLLIUM [Concomitant]
  7. LANSOPRAZOLE [Concomitant]
  8. ACYCLOVIR [Concomitant]
  9. DAPTOMYCIN [Concomitant]
  10. ZOSYN [Concomitant]
  11. INSULIN [Concomitant]

REACTIONS (3)
  - HYPOTENSION [None]
  - OXYGEN SATURATION DECREASED [None]
  - UNRESPONSIVE TO STIMULI [None]
